FAERS Safety Report 6894979-6 (Version None)
Quarter: 2010Q3

REPORT INFORMATION
  Report Type: 
  Country: None (occurrence: None)
  Receive Date: 20100708
  Receipt Date: 20100426
  Transmission Date: 20110219
  Serious: Yes (Other)
  Sender: FDA-Public Use
  Company Number: 2010053219

PATIENT
  Age: 54 Year
  Sex: Female
  Weight: 66.7 kg

DRUGS (3)
  1. CHANTIX [Suspect]
     Indication: SMOKING CESSATION THERAPY
     Dosage: 0.5 MG, 1X/DAY, ORAL
     Route: 048
     Dates: start: 20100401, end: 20100423
  2. LEVOTHROID [Concomitant]
  3. CLARTIN (LORATADINE) [Concomitant]

REACTIONS (4)
  - DYSPNOEA [None]
  - LOCAL SWELLING [None]
  - RASH [None]
  - SWELLING FACE [None]
